FAERS Safety Report 6770179-5 (Version None)
Quarter: 2010Q2

REPORT INFORMATION
  Report Type: 
  Country: None (occurrence: None)
  Receive Date: 20100615
  Receipt Date: 20100120
  Transmission Date: 20101027
  Serious: Yes (Other)
  Sender: FDA-Public Use
  Company Number: ES-MERCK-0906ESP00033

PATIENT
  Age: 38 Year
  Sex: Female
  Weight: 68 kg

DRUGS (5)
  1. ISENTRESS [Suspect]
     Indication: HIV INFECTION
     Route: 048
     Dates: start: 20090429
  2. DARUNAVIR [Concomitant]
     Indication: HIV INFECTION
     Route: 048
     Dates: start: 20090429, end: 20090616
  3. LOPINAVIR AND RITONAVIR [Concomitant]
     Indication: HIV INFECTION
     Route: 048
     Dates: start: 20090616
  4. LOPINAVIR AND RITONAVIR [Concomitant]
     Indication: PREGNANCY
     Route: 048
     Dates: start: 20090616
  5. RITONAVIR [Concomitant]
     Indication: HIV INFECTION
     Route: 048
     Dates: start: 20090429, end: 20090616

REACTIONS (2)
  - DRUG EXPOSURE DURING PREGNANCY [None]
  - PREMATURE LABOUR [None]
